FAERS Safety Report 18332544 (Version 1)
Quarter: 2020Q4

REPORT INFORMATION
  Report Type: Spontaneous
  Country: US (occurrence: US)
  Receive Date: 20201001
  Receipt Date: 20201001
  Transmission Date: 20210113
  Serious: Yes (Hospitalization)
  Sender: FDA-Public Use
  Company Number: US-ROCHE-2687815

PATIENT
  Age: 64 Year
  Sex: Female

DRUGS (24)
  1. AZITHROMYCIN ANHYDROUS. [Concomitant]
     Active Substance: AZITHROMYCIN ANHYDROUS
  2. CETRIZINE [Concomitant]
     Active Substance: CETIRIZINE HYDROCHLORIDE
  3. ENTRESTO [Concomitant]
     Active Substance: SACUBITRIL\VALSARTAN
  4. METOPROLOL SUCCINATE. [Concomitant]
     Active Substance: METOPROLOL SUCCINATE
  5. ESBRIET [Suspect]
     Active Substance: PIRFENIDONE
     Indication: IDIOPATHIC PULMONARY FIBROSIS
     Dosage: 3 TABLET TID
     Route: 048
     Dates: start: 20181130
  6. DOXYCYCLINE HYCLATE. [Concomitant]
     Active Substance: DOXYCYCLINE HYCLATE
  7. GABAPENTIN. [Concomitant]
     Active Substance: GABAPENTIN
  8. LEVOCETIRIZINE [Concomitant]
     Active Substance: LEVOCETIRIZINE
  9. PREDNISONE. [Concomitant]
     Active Substance: PREDNISONE
  10. SPIRONOLACTONE. [Concomitant]
     Active Substance: SPIRONOLACTONE
  11. CLOTRIM [Concomitant]
  12. JANUVIA [Concomitant]
     Active Substance: SITAGLIPTIN PHOSPHATE
  13. DOFETILIDE. [Concomitant]
     Active Substance: DOFETILIDE
  14. TRAMADOL HCL [Concomitant]
     Active Substance: TRAMADOL HYDROCHLORIDE
  15. BENZONATATE. [Concomitant]
     Active Substance: BENZONATATE
  16. CEFDINIR. [Concomitant]
     Active Substance: CEFDINIR
  17. FAMOTIDINE. [Concomitant]
     Active Substance: FAMOTIDINE
  18. FUROSEMIDE. [Concomitant]
     Active Substance: FUROSEMIDE
  19. INSULIN LISPRO [Concomitant]
     Active Substance: INSULIN LISPRO
  20. IPRATROPIUM [Concomitant]
     Active Substance: IPRATROPIUM
  21. NYSTATIN. [Concomitant]
     Active Substance: NYSTATIN
  22. NYSTOP [Concomitant]
     Active Substance: NYSTATIN
  23. OMEPRAZOLE. [Concomitant]
     Active Substance: OMEPRAZOLE
  24. PANTOPRAZOLE [Concomitant]
     Active Substance: PANTOPRAZOLE

REACTIONS (1)
  - Dyspnoea [Unknown]

NARRATIVE: CASE EVENT DATE: 20200831
